FAERS Safety Report 5207236-0 (Version None)
Quarter: 2007Q1

REPORT INFORMATION
  Report Type: 
  Country: None (occurrence: None)
  Receive Date: 20070110
  Receipt Date: 20061226
  Transmission Date: 20070707
  Serious: Yes (Hospitalization, Other)
  Sender: FDA-Public Use
  Company Number: 06-001509

PATIENT
  Age: 13 Year
  Sex: Female

DRUGS (1)
  1. PYRIDIUM (PHENAZOPYRIDINE HYDROCHLORIDE) TABLET, 100MG [Suspect]
     Dosage: 2000 MG, SINGLE, ORAL
     Route: 048

REACTIONS (15)
  - BLOOD SODIUM DECREASED [None]
  - DEPRESSION [None]
  - HAEMATOCRIT DECREASED [None]
  - HEPATITIS ACUTE [None]
  - INTENTIONAL OVERDOSE [None]
  - NEUTROPHIL PERCENTAGE INCREASED [None]
  - NOCTURIA [None]
  - OEDEMA PERIPHERAL [None]
  - PERIORBITAL OEDEMA [None]
  - PITTING OEDEMA [None]
  - POISONING [None]
  - RENAL FAILURE ACUTE [None]
  - RENAL TUBULAR NECROSIS [None]
  - SUICIDE ATTEMPT [None]
  - WHITE BLOOD CELL COUNT INCREASED [None]
